FAERS Safety Report 13857387 (Version 2)
Quarter: 2017Q3

REPORT INFORMATION
  Report Type: Report from Study
  Country: None (occurrence: DO)
  Receive Date: 20170810
  Receipt Date: 20170901
  Transmission Date: 20171127
  Serious: Yes (Other)
  Sender: FDA-Public Use
  Company Number: DO-ABBVIE-17K-279-2068218-00

PATIENT
  Sex: Male

DRUGS (1)
  1. HUMIRA [Suspect]
     Active Substance: ADALIMUMAB
     Indication: ANKYLOSING SPONDYLITIS
     Route: 058
     Dates: start: 20150610, end: 20170719

REACTIONS (1)
  - Tuberculin test positive [Recovered/Resolved]

NARRATIVE: CASE EVENT DATE: 2017
